FAERS Safety Report 9083626 (Version 1)
Quarter: 2013Q1

REPORT INFORMATION
  Report Type: Report from Study
  Country: US (occurrence: US)
  Receive Date: 20130130
  Receipt Date: 20130130
  Transmission Date: 20140127
  Serious: No
  Sender: FDA-Public Use
  Company Number: US-ABBOTT-12P-163-0988207-00

PATIENT
  Sex: Male
  Weight: 72.19 kg

DRUGS (5)
  1. HUMIRA [Suspect]
     Indication: CROHN^S DISEASE
     Route: 058
     Dates: start: 2010, end: 201204
  2. 6-MP [Suspect]
     Dates: start: 2010, end: 2010
  3. CYMZIA [Suspect]
     Indication: CROHN^S DISEASE
     Dates: start: 2012
  4. VICODIN [Concomitant]
     Indication: PAIN
  5. VALIUM [Concomitant]
     Indication: PAIN

REACTIONS (4)
  - Weight decreased [Not Recovered/Not Resolved]
  - Crohn^s disease [Unknown]
  - Crohn^s disease [Not Recovered/Not Resolved]
  - Hypoaesthesia [Recovered/Resolved]
